FAERS Safety Report 16675297 (Version 2)
Quarter: 2021Q1

REPORT INFORMATION
  Report Type: Spontaneous
  Country: JP (occurrence: JP)
  Receive Date: 20190806
  Receipt Date: 20210126
  Transmission Date: 20210419
  Serious: Yes (Hospitalization, Other)
  Sender: FDA-Public Use
  Company Number: JP-PFIZER INC-2019329317

PATIENT
  Age: 3 Decade
  Sex: Male

DRUGS (4)
  1. REFLEX [Concomitant]
     Active Substance: MIRTAZAPINE
     Dosage: 525 MG, SINGLE
  2. REFLEX [Concomitant]
     Active Substance: MIRTAZAPINE
     Dosage: 0.5 MG, 1X/DAY
  3. EFFEXOR [Suspect]
     Active Substance: VENLAFAXINE HYDROCHLORIDE
     Dosage: 5250 MG, SINGLE
  4. EFFEXOR [Suspect]
     Active Substance: VENLAFAXINE HYDROCHLORIDE
     Dosage: 75 MG, 1X/DAY

REACTIONS (7)
  - Toxicity to various agents [Unknown]
  - Electrocardiogram QT prolonged [Unknown]
  - Seizure [Recovered/Resolved]
  - Serotonin syndrome [Unknown]
  - Tachycardia [Unknown]
  - Intentional overdose [Unknown]
  - Suicide attempt [Unknown]
